FAERS Safety Report 6015526-7 (Version None)
Quarter: 2008Q4

REPORT INFORMATION
  Report Type: 
  Country: None (occurrence: None)
  Receive Date: 20081219
  Receipt Date: 20081219
  Transmission Date: 20090506
  Serious: Yes (Hospitalization)
  Sender: FDA-Public Use
  Company Number: None

PATIENT
  Age: 67 Year
  Sex: Male

DRUGS (2)
  1. NAPROXEN [Suspect]
     Indication: OSTEOARTHRITIS
     Dosage: 500 MG BID PO
     Route: 048
     Dates: start: 20061024, end: 20081110
  2. IBUPROFEN TABLETS [Suspect]
     Indication: OSTEOARTHRITIS
     Dosage: 200 MG PRN PO
     Route: 048
     Dates: start: 20060901, end: 20081110

REACTIONS (1)
  - RENAL FAILURE ACUTE [None]
